FAERS Safety Report 23492837 (Version 1)
Quarter: 2024Q1

REPORT INFORMATION
  Report Type: Report from Study
  Country: US (occurrence: US)
  Receive Date: 20240207
  Receipt Date: 20240207
  Transmission Date: 20240410
  Serious: No
  Sender: FDA-Public Use
  Company Number: US-ORG100014127-2023000917

PATIENT
  Age: 5 Year
  Sex: Male

DRUGS (4)
  1. LYSODREN [Suspect]
     Active Substance: MITOTANE
     Indication: Adrenal gland cancer
     Dosage: 1.5 TABLETS BY MOUTH 4 TIMES DAILY
     Route: 048
     Dates: start: 20220811
  2. Fludrocort tab 0.1mg [Concomitant]
     Indication: Product used for unknown indication
  3. Hydrocort CRE 0.5% [Concomitant]
     Indication: Product used for unknown indication
  4. PENICILLIN V POTASSIUM [Concomitant]
     Active Substance: PENICILLIN V POTASSIUM
     Indication: Product used for unknown indication

REACTIONS (2)
  - Wrong technique in product usage process [Unknown]
  - Off label use [Unknown]

NARRATIVE: CASE EVENT DATE: 20220811
